FAERS Safety Report 17582924 (Version 1)
Quarter: 2020Q1

REPORT INFORMATION
  Report Type: Spontaneous
  Country: US (occurrence: US)
  Receive Date: 20200325
  Receipt Date: 20200325
  Transmission Date: 20200409
  Serious: No
  Sender: FDA-Public Use
  Company Number: US-VERASTEM-2020-00046

PATIENT

DRUGS (3)
  1. COPIKTRA [Suspect]
     Active Substance: DUVELISIB
     Indication: B-CELL SMALL LYMPHOCYTIC LYMPHOMA
  2. COPIKTRA [Suspect]
     Active Substance: DUVELISIB
     Indication: CHRONIC LEUKAEMIA
     Dosage: 15 MG, BID
     Route: 048
     Dates: start: 20200219
  3. COPIKTRA [Suspect]
     Active Substance: DUVELISIB
     Indication: THROMBOCYTOPENIA

REACTIONS (3)
  - Prescribed underdose [Not Recovered/Not Resolved]
  - Oropharyngeal pain [Unknown]
  - Rash pruritic [Unknown]

NARRATIVE: CASE EVENT DATE: 2020
